FAERS Safety Report 9388035 (Version 1)
Quarter: 2013Q3

REPORT INFORMATION
  Report Type: Report from Study
  Country: IL (occurrence: IL)
  Receive Date: 20130708
  Receipt Date: 20130708
  Transmission Date: 20140515
  Serious: Yes (Death, Hospitalization)
  Sender: FDA-Public Use
  Company Number: IL-TEVA-417151ISR

PATIENT
  Age: 65 Year
  Sex: Female

DRUGS (6)
  1. DOXORUBICIN [Suspect]
     Indication: BREAST CANCER METASTATIC
     Route: 065
  2. PACLITAXEL [Suspect]
     Indication: BREAST CANCER
     Dosage: DATE OF LAST DOSE PRIOR TO SAE: 24-JUL-2012 (80 MG/M2,WEEKLY 3/4)
     Route: 042
     Dates: start: 20120419
  3. GEMCITABINE [Suspect]
     Indication: BREAST CANCER
     Dosage: DATE OF LAST PRIOR TO SAE: 10-FEB-2013 (1000 MG/M2, WEEKLY 3/4)
     Route: 042
     Dates: start: 20120813, end: 20130211
  4. VINORELBINE TARTARATE [Suspect]
     Indication: BREAST CANCER
     Dosage: DATE OF LAST DOSE PRIOR TO SAE: 09-APR-2012
     Route: 042
     Dates: start: 20110904
  5. AUGMENTIN [Concomitant]
     Dates: start: 20130226, end: 20130226
  6. CEFAMICIN [Concomitant]

REACTIONS (1)
  - Mitral valve incompetence [Fatal]
